FAERS Safety Report 13742220 (Version 1)
Quarter: 2017Q3

REPORT INFORMATION
  Report Type: Report from Study
  Country: CZ (occurrence: CZ)
  Receive Date: 20170711
  Receipt Date: 20170711
  Transmission Date: 20171127
  Serious: Yes (Hospitalization)
  Sender: FDA-Public Use
  Company Number: CZ-BIOGEN-2017BI00412767

PATIENT
  Age: 43 Year
  Sex: Male

DRUGS (4)
  1. TYSABRI [Suspect]
     Active Substance: NATALIZUMAB
     Indication: PRODUCT USED FOR UNKNOWN INDICATION
     Route: 065
     Dates: start: 20160330, end: 201612
  2. SOLIFENACINUM [Concomitant]
     Indication: GENITOURINARY SYMPTOM
     Route: 048
     Dates: start: 20150121, end: 20170321
  3. TYSABRI [Suspect]
     Active Substance: NATALIZUMAB
     Route: 065
     Dates: end: 20170329
  4. TRIMETOPRIM [Concomitant]
     Active Substance: TRIMETHOPRIM
     Indication: URINARY TRACT INFECTION
     Route: 048
     Dates: start: 20170316, end: 20170321

REACTIONS (1)
  - Klebsiella infection [Recovered/Resolved with Sequelae]

NARRATIVE: CASE EVENT DATE: 20170322
